FAERS Safety Report 17130772 (Version 1)
Quarter: 2019Q4

REPORT INFORMATION
  Report Type: Spontaneous
  Country: US (occurrence: US)
  Receive Date: 20191209
  Receipt Date: 20191209
  Transmission Date: 20200122
  Serious: Yes (Hospitalization, Other)
  Sender: FDA-Public Use
  Company Number: US-NAPPMUNDI-USA-2019-0149291

PATIENT
  Age: 56 Year
  Sex: Male

DRUGS (2)
  1. OXYCODONE HCL CR TABLETS (SIMILAR TO NDA 22-272) [Suspect]
     Active Substance: OXYCODONE HYDROCHLORIDE
     Indication: PAIN
     Dosage: 5 MG, QID
     Route: 048
  2. OXYCODONE HCL CR TABLETS (SIMILAR TO NDA 22-272) [Suspect]
     Active Substance: OXYCODONE HYDROCHLORIDE
     Indication: PHANTOM LIMB SYNDROME
     Dosage: 15 MG, QID
     Route: 048

REACTIONS (12)
  - Arthropathy [Unknown]
  - Drug ineffective [Not Recovered/Not Resolved]
  - Overdose [Not Recovered/Not Resolved]
  - Muscle spasms [Unknown]
  - Musculoskeletal chest pain [Unknown]
  - Pruritus [Recovered/Resolved]
  - Sleep disorder [Not Recovered/Not Resolved]
  - Hip arthroplasty [Unknown]
  - Tendon operation [Unknown]
  - Euphoric mood [Recovered/Resolved]
  - Hyperhidrosis [Not Recovered/Not Resolved]
  - Pulmonary thrombosis [Unknown]

NARRATIVE: CASE EVENT DATE: 20090105
